FAERS Safety Report 21353968 (Version 1)
Quarter: 2022Q3

REPORT INFORMATION
  Report Type: Spontaneous
  Country: GB (occurrence: GB)
  Receive Date: 20220920
  Receipt Date: 20220920
  Transmission Date: 20221027
  Serious: Yes (Hospitalization, Other)
  Sender: FDA-Public Use
  Company Number: GB-MHRA-MED-202209061144056410-TWCKV

PATIENT
  Sex: Female

DRUGS (1)
  1. PANZYGA [Suspect]
     Active Substance: HUMAN IMMUNOGLOBULIN G
     Indication: Product used for unknown indication
     Route: 058

REACTIONS (7)
  - Dizziness [Recovered/Resolved]
  - Vision blurred [Recovered/Resolved]
  - Chest pain [Recovered/Resolved]
  - Body temperature [Recovered/Resolved]
  - Chills [Recovered/Resolved]
  - Incorrect route of product administration [Unknown]
  - Exposure during pregnancy [Unknown]

NARRATIVE: CASE EVENT DATE: 20220901
